FAERS Safety Report 8564176-7 (Version None)
Quarter: 2012Q3

REPORT INFORMATION
  Report Type: 
  Country: None (occurrence: None)
  Receive Date: 20120803
  Receipt Date: 20120801
  Transmission Date: 20120928
  Serious: Yes (Life-Threatening)
  Sender: FDA-Public Use
  Company Number: AU-MPIJNJ-2012-05378

PATIENT

DRUGS (3)
  1. RITUXIMAB [Concomitant]
     Indication: MANTLE CELL LYMPHOMA
     Dosage: 375 UNK, UNK
  2. BENDAMUSTINE HYDROCHLORIDE [Concomitant]
     Indication: MANTLE CELL LYMPHOMA
     Dosage: 90 MG/M2, UNK
  3. VELCADE [Suspect]
     Indication: MANTLE CELL LYMPHOMA
     Dosage: 1.3 MG/M2, UNK
     Route: 065

REACTIONS (1)
  - THROMBOTIC THROMBOCYTOPENIC PURPURA [None]
